FAERS Safety Report 14701324 (Version 1)
Quarter: 2018Q1

REPORT INFORMATION
  Report Type: Report from Study
  Country: TW (occurrence: TW)
  Receive Date: 20180330
  Receipt Date: 20180330
  Transmission Date: 20180509
  Serious: Yes (Other)
  Sender: FDA-Public Use
  Company Number: PHHY2018TW035773

PATIENT
  Age: 76 Year
  Sex: Male

DRUGS (32)
  1. TASIGNA [Suspect]
     Active Substance: NILOTINIB
     Indication: CHRONIC MYELOID LEUKAEMIA
     Dosage: 600 MG, UNK
     Route: 048
     Dates: start: 20140118, end: 20140211
  2. ACETYLCYSTEIN [Concomitant]
     Active Substance: ACETYLCYSTEINE
     Indication: PROPHYLAXIS
     Dosage: 600 MG, UNK
     Route: 048
     Dates: start: 20150805, end: 20150806
  3. TAMSULOSIN [Concomitant]
     Active Substance: TAMSULOSIN
     Indication: BENIGN PROSTATIC HYPERPLASIA
     Dosage: 0.4 MG, UNK
     Route: 048
     Dates: start: 20141015
  4. ATORVASTATIN [Concomitant]
     Active Substance: ATORVASTATIN
     Indication: HYPERLIPIDAEMIA
     Dosage: 10 MG, UNK
     Route: 048
     Dates: start: 20150225
  5. CELEBREX [Concomitant]
     Active Substance: CELECOXIB
     Indication: CHRONIC OBSTRUCTIVE PULMONARY DISEASE
     Dosage: 200 MG, UNK
     Route: 048
     Dates: start: 20170609
  6. DIFFLAM FORTE [Concomitant]
     Indication: PROPHYLAXIS
     Dosage: UNK
     Route: 065
     Dates: start: 20150128, end: 20150131
  7. SODIUM BICARBONATE. [Concomitant]
     Active Substance: SODIUM BICARBONATE
     Indication: PROPHYLAXIS
     Dosage: 300 MG, UNK
     Route: 048
     Dates: start: 20141015, end: 20150324
  8. TASIGNA [Suspect]
     Active Substance: NILOTINIB
     Dosage: 300 OT, UNK
     Route: 048
     Dates: start: 20140212, end: 20140617
  9. TASIGNA [Suspect]
     Active Substance: NILOTINIB
     Dosage: 600 OT, UNK
     Route: 048
     Dates: start: 20140716, end: 20140812
  10. DIOVAN [Concomitant]
     Active Substance: VALSARTAN
     Indication: CHRONIC OBSTRUCTIVE PULMONARY DISEASE
     Dosage: 40 MG, UNK
     Route: 048
     Dates: start: 20150612, end: 20150713
  11. SODIUM BICARBONATE. [Concomitant]
     Active Substance: SODIUM BICARBONATE
     Dosage: 100 ML, UNK
     Route: 042
     Dates: start: 20150805, end: 20150805
  12. TASIGNA [Suspect]
     Active Substance: NILOTINIB
     Dosage: 450 OT, UNK
     Route: 048
     Dates: start: 20140813, end: 20150917
  13. COLCHICINE. [Concomitant]
     Active Substance: COLCHICINE
     Indication: GOUTY ARTHRITIS
     Dosage: 0.5 MG, UNK
     Route: 048
     Dates: start: 20141015
  14. FEBURIC [Concomitant]
     Active Substance: FEBUXOSTAT
     Indication: GOUTY ARTHRITIS
     Dosage: 80 MG, UNK
     Route: 048
     Dates: start: 20170609, end: 20170616
  15. LORAPSEUDO [Concomitant]
     Indication: PROPHYLAXIS
     Dosage: 1 DF, UNK
     Route: 048
     Dates: start: 20150128, end: 20150204
  16. DULCOLAX NOS [Concomitant]
     Active Substance: BISACODYL OR DOCUSATE SODIUM
     Indication: COLONOSCOPY
     Dosage: 15 MG, UNK
     Route: 048
     Dates: start: 20151105, end: 20151105
  17. SENOKOT [Concomitant]
     Active Substance: SENNOSIDES
     Indication: CHRONIC OBSTRUCTIVE PULMONARY DISEASE
     Dosage: 15 MG, UNK
     Route: 048
     Dates: start: 20170609
  18. TASIGNA [Suspect]
     Active Substance: NILOTINIB
     Dosage: 600 OT, UNK
     Route: 048
     Dates: start: 20150918
  19. BOKEY [Concomitant]
     Indication: CHRONIC OBSTRUCTIVE PULMONARY DISEASE
     Dosage: 100 MG, UNK
     Route: 048
     Dates: start: 20150729
  20. BROEN-C [Concomitant]
     Indication: PROPHYLAXIS
     Dosage: 1 DF, UNK
     Route: 048
     Dates: start: 20150128, end: 20150204
  21. FLUR DI FEN [Concomitant]
     Indication: CHRONIC OBSTRUCTIVE PULMONARY DISEASE
     Dosage: 3.33 MG/G, UNK
     Route: 065
     Dates: start: 20170120
  22. ANXIEDIN [Concomitant]
     Indication: PROPHYLAXIS
     Dosage: 0.5 MG, UNK
     Route: 048
     Dates: start: 20150805, end: 20150806
  23. TEIRIA [Concomitant]
     Indication: PROPHYLAXIS
     Dosage: UNK
     Route: 065
     Dates: start: 20160729
  24. SCANOL [Concomitant]
     Indication: PROPHYLAXIS
     Dosage: 500 MG, UNK
     Route: 048
     Dates: start: 20150128, end: 20150204
  25. ALLOPURINOL. [Concomitant]
     Active Substance: ALLOPURINOL
     Indication: GOUTY ARTHRITIS
     Dosage: 100 MG, UNK
     Route: 048
     Dates: start: 20141112
  26. FUBIFEN PAP [Concomitant]
     Indication: GOUTY ARTHRITIS
     Dosage: 40 MG/10, UNK
     Route: 065
     Dates: start: 20160727, end: 20161126
  27. HERBESSER [Concomitant]
     Active Substance: DILTIAZEM HYDROCHLORIDE
     Indication: CHRONIC OBSTRUCTIVE PULMONARY DISEASE
     Dosage: 30 MG, UNK
     Route: 048
     Dates: start: 20150729
  28. SHINCORT [Concomitant]
     Indication: GOUTY ARTHRITIS
     Dosage: 2 ML, UNK
     Route: 065
     Dates: start: 20150826, end: 20150826
  29. TASIGNA [Suspect]
     Active Substance: NILOTINIB
     Dosage: 450 OT, UNK
     Route: 048
     Dates: start: 20140618, end: 20140715
  30. CHLORPHENAMINE [Concomitant]
     Active Substance: CHLORPHENIRAMINE MALEATE
     Indication: PROPHYLAXIS
     Dosage: 5 MG, UNK
     Route: 042
     Dates: start: 20150805, end: 20150805
  31. KLEAN-PREP [Concomitant]
     Active Substance: ELECTROLYTES NOS\POLYETHYLENE GLYCOL 3350
     Indication: COLONOSCOPY
     Dosage: 2 DF (NP), UNK
     Route: 048
     Dates: start: 20151105, end: 20151105
  32. TEIRIA [Concomitant]
     Indication: CHRONIC OBSTRUCTIVE PULMONARY DISEASE

REACTIONS (1)
  - Nephritis [Recovering/Resolving]

NARRATIVE: CASE EVENT DATE: 20170609
